FAERS Safety Report 4832749-0 (Version None)
Quarter: 2005Q4

REPORT INFORMATION
  Report Type: 
  Country: None (occurrence: None)
  Receive Date: 20051117
  Receipt Date: 20051107
  Transmission Date: 20060501
  Serious: Yes (Hospitalization, Other)
  Sender: FDA-Public Use
  Company Number: US_0511123621

PATIENT
  Sex: Female
  Weight: 66 kg

DRUGS (6)
  1. ZYPREXA [Suspect]
     Indication: ANXIETY
     Dosage: 15 MG AS NEEDED
     Dates: start: 19961101, end: 20040727
  2. ZYPREXA [Suspect]
     Indication: ANXIETY
     Dates: end: 20040727
  3. LITHIUM [Concomitant]
  4. NEURONTIN [Concomitant]
  5. EFFEXOR [Concomitant]
  6. DEPAKOTE [Concomitant]

REACTIONS (14)
  - BLOOD PRESSURE FLUCTUATION [None]
  - CORRECTIVE LENS USER [None]
  - GASTRIC ULCER [None]
  - HEPATIC FUNCTION ABNORMAL [None]
  - HIATUS HERNIA [None]
  - HYPOACUSIS [None]
  - HYSTERECTOMY [None]
  - NEPHROLITHIASIS [None]
  - OSTEOPOROSIS [None]
  - RHEUMATOID ARTHRITIS [None]
  - SUICIDE ATTEMPT [None]
  - VISION BLURRED [None]
  - VOMITING [None]
  - WEIGHT DECREASED [None]
